FAERS Safety Report 5337532-8 (Version None)
Quarter: 2007Q2

REPORT INFORMATION
  Report Type: 
  Country: None (occurrence: None)
  Receive Date: 20070524
  Receipt Date: 20070516
  Transmission Date: 20071010
  Serious: Yes (Hospitalization)
  Sender: FDA-Public Use
  Company Number: 2007AL001994

PATIENT
  Age: 59 Year
  Sex: Female

DRUGS (2)
  1. DILTIAZEM HCL [Suspect]
     Dosage: 4800 MG; X1; PO
     Route: 048
  2. VALIUM [Concomitant]

REACTIONS (19)
  - ACIDOSIS [None]
  - BRADYCARDIA [None]
  - CARDIAC ARREST [None]
  - DEEP VEIN THROMBOSIS [None]
  - GASTRIC HAEMORRHAGE [None]
  - HYPOTENSION [None]
  - LOSS OF CONSCIOUSNESS [None]
  - MENTAL STATUS CHANGES [None]
  - NAUSEA [None]
  - NEUROPATHY PERIPHERAL [None]
  - NODAL RHYTHM [None]
  - OLIGURIA [None]
  - OVERDOSE [None]
  - PANCREATITIS [None]
  - PNEUMONIA ASPIRATION [None]
  - RENAL IMPAIRMENT [None]
  - RESPIRATORY DISTRESS [None]
  - VENTRICULAR FIBRILLATION [None]
  - VOMITING [None]
